FAERS Safety Report 21049997 (Version 2)
Quarter: 2022Q3

REPORT INFORMATION
  Report Type: Report from Study
  Country: US (occurrence: US)
  Receive Date: 20220706
  Receipt Date: 20220712
  Transmission Date: 20221027
  Serious: Yes (Hospitalization)
  Sender: FDA-Public Use
  Company Number: US-TAKEDA-2022TUS044083

PATIENT
  Age: 35 Year
  Sex: Male

DRUGS (3)
  1. IXAZOMIB [Suspect]
     Active Substance: IXAZOMIB
     Indication: Non-renal cell carcinoma of kidney
     Dosage: 5.5 MILLIGRAM
     Route: 048
     Dates: start: 20220610
  2. GEMCITABINE [Suspect]
     Active Substance: GEMCITABINE
     Indication: Non-renal cell carcinoma of kidney
     Dosage: 1596 MILLIGRAM
     Route: 042
     Dates: start: 20220610
  3. DOXORUBICIN HYDROCHLORIDE [Suspect]
     Active Substance: DOXORUBICIN HYDROCHLORIDE
     Indication: Non-renal cell carcinoma of kidney
     Dosage: 88 MILLIGRAM
     Route: 042
     Dates: start: 20220610

REACTIONS (1)
  - Hydrothorax [Unknown]

NARRATIVE: CASE EVENT DATE: 20220629
